FAERS Safety Report 22762768 (Version 4)
Quarter: 2024Q3

REPORT INFORMATION
  Report Type: Spontaneous
  Country: JP (occurrence: JP)
  Receive Date: 20230728
  Receipt Date: 20240904
  Transmission Date: 20241016
  Serious: Yes (Death, Other)
  Sender: JAZZ
  Company Number: JP-JAZZ PHARMACEUTICALS-2023-JP-016151

PATIENT
  Age: 53 Year
  Sex: Female
  Weight: 61.3 kg

DRUGS (1)
  1. DEFITELIO [Suspect]
     Active Substance: DEFIBROTIDE SODIUM
     Indication: Venoocclusive liver disease
     Dosage: 20 MILLIGRAM/KILOGRAM
     Route: 042
     Dates: start: 20230514, end: 20230602

REACTIONS (2)
  - Venoocclusive liver disease [Fatal]
  - Hypotension [Not Recovered/Not Resolved]

NARRATIVE: CASE EVENT DATE: 20230514
